FAERS Safety Report 5020537-4 (Version None)
Quarter: 2006Q2

REPORT INFORMATION
  Report Type: 
  Country: None (occurrence: None)
  Receive Date: 20060607
  Receipt Date: 20060607
  Transmission Date: 20061013
  Serious: Yes (Hospitalization, Other)
  Sender: FDA-Public Use
  Company Number: None

PATIENT
  Age: 39 Year
  Sex: Female
  Weight: 100.6985 kg

DRUGS (10)
  1. ABILIFY [Suspect]
     Indication: BIPOLAR DISORDER
     Dosage: RISPERIDAL
     Dates: start: 20060508, end: 20060605
  2. TRILEPTAL [Suspect]
  3. RISPERDAL [Concomitant]
  4. ZYPREXA [Concomitant]
  5. ABILIFY [Concomitant]
  6. TRILEPTAL [Concomitant]
  7. DEPAKOTE [Concomitant]
  8. ALPRAZOLAM [Concomitant]
  9. OXYGEN [Concomitant]
  10. BYPAP [Concomitant]

REACTIONS (5)
  - DIABETES MELLITUS [None]
  - DYSURIA [None]
  - MENSTRUAL DISORDER [None]
  - WEIGHT DECREASED [None]
  - WEIGHT INCREASED [None]
